FAERS Safety Report 7486956-1 (Version None)
Quarter: 2011Q2

REPORT INFORMATION
  Report Type: 
  Country: None (occurrence: None)
  Receive Date: 20110517
  Receipt Date: 20110511
  Transmission Date: 20111010
  Serious: Yes (Hospitalization)
  Sender: FDA-Public Use
  Company Number: US-RB-026575-11

PATIENT
  Age: 52 Year
  Sex: Male

DRUGS (4)
  1. XANAX [Concomitant]
     Indication: ANXIETY
     Dosage: DOSAGE INFORMATION UNKNOWN
  2. ANTIHYPERTENSIVE MEDICATION [Concomitant]
     Indication: HYPERTENSION
     Dosage: DOSAGE INFORMATION UNKNOWN
     Route: 065
     Dates: end: 20110401
  3. SUBOXONE [Suspect]
     Indication: DRUG DEPENDENCE
     Dosage: 4 TO 8 MG DAILY
     Route: 060
     Dates: start: 20110419, end: 20110401
  4. SUBOXONE [Suspect]
     Indication: PAIN MANAGEMENT
     Route: 060
     Dates: start: 20110401

REACTIONS (8)
  - INFECTION [None]
  - DYSKINESIA [None]
  - ANXIETY [None]
  - BLOOD PRESSURE INCREASED [None]
  - PAIN [None]
  - CHEST PAIN [None]
  - DRUG WITHDRAWAL SYNDROME [None]
  - AGITATION [None]
